FAERS Safety Report 6091464-9 (Version None)
Quarter: 2009Q1

REPORT INFORMATION
  Report Type: 
  Country: None (occurrence: None)
  Receive Date: 20090223
  Receipt Date: 20090205
  Transmission Date: 20090719
  Serious: Yes (Life-Threatening, Hospitalization)
  Sender: FDA-Public Use
  Company Number: 2009-190689-NL

PATIENT
  Sex: Male

DRUGS (2)
  1. MIRTAZAPINE [Suspect]
     Dosage: TRANSPLACENTAL
     Route: 064
  2. VENLAFAXINE HCL [Suspect]
     Dosage: TRANSPLACENTAL
     Route: 064

REACTIONS (5)
  - CAESAREAN SECTION [None]
  - CONVULSION [None]
  - MATERNAL DRUGS AFFECTING FOETUS [None]
  - PREMATURE BABY [None]
  - RHABDOMYOLYSIS [None]
